FAERS Safety Report 11393914 (Version 1)
Quarter: 2015Q3

REPORT INFORMATION
  Report Type: Spontaneous
  Country: US (occurrence: None)
  Receive Date: 20150817
  Receipt Date: 20150817
  Transmission Date: 20151125
  Serious: Yes (Other)
  Sender: FDA-Public Use
  Company Number: None

PATIENT
  Age: 80 Year
  Sex: Female
  Weight: 69.85 kg

DRUGS (15)
  1. ONE A DAY [Concomitant]
  2. BENADRYL [Concomitant]
     Active Substance: DIPHENHYDRAMINE HYDROCHLORIDE
  3. FLEXERIL [Concomitant]
     Active Substance: CYCLOBENZAPRINE HYDROCHLORIDE
  4. HYDROCODONE [Concomitant]
     Active Substance: HYDROCODONE
  5. CLARITIN [Concomitant]
     Active Substance: LORATADINE
  6. CITRICAL WITH D [Concomitant]
  7. OMEGA 3 [Concomitant]
     Active Substance: OMEGA-3 FATTY ACIDS
  8. OCCUVITE +50 [Concomitant]
  9. TERBINAFINE. [Suspect]
     Active Substance: TERBINAFINE
     Indication: ONYCHOMYCOSIS
     Dosage: 1 PILL
     Route: 048
     Dates: start: 20150508, end: 20150610
  10. XANAX [Concomitant]
     Active Substance: ALPRAZOLAM
  11. FLOVENT [Concomitant]
     Active Substance: FLUTICASONE PROPIONATE
  12. ZOLPIDEM TARTRATE. [Concomitant]
     Active Substance: ZOLPIDEM TARTRATE
  13. ZETIA [Concomitant]
     Active Substance: EZETIMIBE
  14. FENOFIBRATE. [Concomitant]
     Active Substance: FENOFIBRATE
  15. ZESTORETIC [Concomitant]
     Active Substance: HYDROCHLOROTHIAZIDE\LISINOPRIL

REACTIONS (4)
  - Decreased appetite [None]
  - Dyspnoea [None]
  - Muscular weakness [None]
  - Diarrhoea [None]

NARRATIVE: CASE EVENT DATE: 20150526
